FAERS Safety Report 9182637 (Version 1)
Quarter: 2012Q4

REPORT INFORMATION
  Report Type: 
  Country: VE (occurrence: VE)
  Receive Date: 20121030
  Receipt Date: 20121030
  Transmission Date: 20130627
  Serious: Yes (Other)
  Sender: FDA-Public Use
  Company Number: VE-AMGEN-VENSP2012067370

PATIENT
  Age: 50 Year
  Sex: Male

DRUGS (2)
  1. ENBREL [Suspect]
     Indication: PSORIASIS
     Dosage: 50 mg, 2x/week
     Route: 058
     Dates: start: 2009
  2. HYZAAR [Concomitant]
     Indication: HYPERTENSION
     Dosage: 50/12.5 mg, 1x/day
     Route: 048

REACTIONS (2)
  - Decreased immune responsiveness [Unknown]
  - Hepatitis A [Recovered/Resolved]
